FAERS Safety Report 10211030 (Version 1)
Quarter: 2014Q2

REPORT INFORMATION
  Report Type: Spontaneous
  Country: TR (occurrence: TR)
  Receive Date: 20140602
  Receipt Date: 20140602
  Transmission Date: 20141212
  Serious: Yes (Hospitalization)
  Sender: FDA-Public Use
  Company Number: TR-BANPHARM-20142730

PATIENT
  Age: 25 Year
  Sex: Female

DRUGS (2)
  1. VALPROIC ACID UNKNOWN PRODUCT [Suspect]
     Indication: CONVULSION
     Dosage: 1500 MG, QD,
     Route: 048
  2. LEVETIRACETAM [Concomitant]
     Indication: CONVULSION

REACTIONS (3)
  - Mania [Recovering/Resolving]
  - Psychotic behaviour [Recovering/Resolving]
  - Therapy cessation [Recovering/Resolving]
